FAERS Safety Report 19819254 (Version 1)
Quarter: 2021Q3

REPORT INFORMATION
  Report Type: Spontaneous
  Country: IT (occurrence: IT)
  Receive Date: 20210913
  Receipt Date: 20210913
  Transmission Date: 20211014
  Serious: Yes (Other)
  Sender: FDA-Public Use
  Company Number: IT-ACCORD-238107

PATIENT
  Age: 68 Year
  Sex: Female
  Weight: 47 kg

DRUGS (8)
  1. FLUOROURACIL AHCL [Concomitant]
     Active Substance: FLUOROURACIL
     Dosage: 50 MG / ML, SOLUTION FOR INJECTION OR INFUSION
     Route: 042
     Dates: start: 20210713, end: 20210713
  2. SOLDESAM [Concomitant]
     Active Substance: DEXAMETHASONE
     Route: 042
     Dates: start: 20210713, end: 20210713
  3. CHLORPHENAMINE [Concomitant]
     Active Substance: CHLORPHENIRAMINE MALEATE
     Route: 042
     Dates: start: 20210713, end: 20210713
  4. SODIUM LEVOFOLINATE MEDAC [Concomitant]
     Active Substance: LEVOLEUCOVORIN DISODIUM
     Route: 042
     Dates: start: 20210713, end: 20210713
  5. OXALIPLATIN ACCORD [Concomitant]
     Active Substance: OXALIPLATIN
     Route: 042
     Dates: start: 20210713, end: 20210713
  6. FLUOROURACIL AHCL [Suspect]
     Active Substance: FLUOROURACIL
     Indication: GASTRIC CANCER
     Route: 042
     Dates: start: 20210713, end: 20210715
  7. ONDANSETRON [Concomitant]
     Active Substance: ONDANSETRON
     Route: 042
     Dates: start: 20210713, end: 20210713
  8. OMEPRAZOLE. [Concomitant]
     Active Substance: OMEPRAZOLE
     Route: 042
     Dates: start: 20210713, end: 20210713

REACTIONS (4)
  - Infusion site erythema [Recovering/Resolving]
  - Device dislocation [Recovering/Resolving]
  - Infusion site eschar [Recovering/Resolving]
  - Administration site extravasation [Recovering/Resolving]

NARRATIVE: CASE EVENT DATE: 20210715
